FAERS Safety Report 20448637 (Version 2)
Quarter: 2022Q1

REPORT INFORMATION
  Report Type: Spontaneous
  Country: IT (occurrence: IT)
  Receive Date: 20220209
  Receipt Date: 20220314
  Transmission Date: 20220423
  Serious: Yes (Other)
  Sender: FDA-Public Use
  Company Number: None

PATIENT
  Age: 47 Year
  Sex: Female

DRUGS (5)
  1. IBUPROFEN [Suspect]
     Active Substance: IBUPROFEN
     Indication: Product used for unknown indication
  2. LANSOPRAZOLE [Suspect]
     Active Substance: LANSOPRAZOLE
     Indication: Product used for unknown indication
  3. IOMERON [Suspect]
     Active Substance: IOMEPROL
     Indication: Computerised tomogram abdomen
  4. LEVOTHYROXINE SODIUM [Concomitant]
     Active Substance: LEVOTHYROXINE SODIUM
     Indication: Product used for unknown indication
  5. ESOMEPRAZOLE [Concomitant]
     Active Substance: ESOMEPRAZOLE
     Indication: Product used for unknown indication

REACTIONS (3)
  - Flushing [Recovering/Resolving]
  - Urticaria [Recovering/Resolving]
  - Hypersensitivity [Recovering/Resolving]

NARRATIVE: CASE EVENT DATE: 20211221
